FAERS Safety Report 23585891 (Version 2)
Quarter: 2024Q2

REPORT INFORMATION
  Report Type: Spontaneous
  Country: PL (occurrence: PL)
  Receive Date: 20240301
  Receipt Date: 20240620
  Transmission Date: 20240715
  Serious: Yes (Death, Life-Threatening, Hospitalization, Other)
  Sender: FDA-Public Use
  Company Number: PL-ASPEN-GLO2024PL000041

PATIENT
  Age: 12 Year
  Sex: Female

DRUGS (25)
  1. CYCLOPHOSPHAMIDE [Suspect]
     Active Substance: CYCLOPHOSPHAMIDE
     Indication: Acute lymphocytic leukaemia
     Dosage: UNK
     Route: 065
  2. CYTARABINE [Suspect]
     Active Substance: CYTARABINE
     Indication: Acute lymphocytic leukaemia
     Dosage: UNK
     Route: 065
  3. CALASPARGASE PEGOL [Suspect]
     Active Substance: CALASPARGASE PEGOL
     Indication: Acute lymphocytic leukaemia
     Dosage: UNK
     Route: 065
  4. DOXORUBICIN [Suspect]
     Active Substance: DOXORUBICIN
     Indication: Acute lymphocytic leukaemia
     Dosage: UNK
     Route: 065
  5. DAUNORUBICIN HYDROCHLORIDE [Suspect]
     Active Substance: DAUNORUBICIN HYDROCHLORIDE
     Indication: Acute lymphocytic leukaemia
     Dosage: UNK
     Route: 065
  6. DEXAMETHASONE [Suspect]
     Active Substance: DEXAMETHASONE
     Indication: Acute lymphocytic leukaemia
     Dosage: UNK
     Route: 065
  7. DEXRAZOXANE HYDROCHLORIDE [Suspect]
     Active Substance: DEXRAZOXANE HYDROCHLORIDE
     Indication: Acute lymphocytic leukaemia
     Dosage: UNK
     Route: 065
  8. ETOPOSIDE [Suspect]
     Active Substance: ETOPOSIDE
     Indication: Acute lymphocytic leukaemia
     Dosage: UNK
     Route: 065
  9. FILGRASTIM [Suspect]
     Active Substance: FILGRASTIM
     Indication: Acute lymphocytic leukaemia
     Dosage: UNK
     Route: 065
  10. HUMAN IMMUNOGLOBULIN G [Suspect]
     Active Substance: HUMAN IMMUNOGLOBULIN G
     Indication: Respiratory syncytial virus infection
     Dosage: UNK
     Route: 042
     Dates: start: 202112
  11. HYDROCORTISONE [Suspect]
     Active Substance: HYDROCORTISONE\HYDROCORTISONE ACETATE
     Indication: Acute lymphocytic leukaemia
     Dosage: UNK
     Route: 065
  12. IMATINIB MESYLATE [Suspect]
     Active Substance: IMATINIB MESYLATE
     Indication: Acute lymphocytic leukaemia
     Dosage: 340 MG/M2,ROM DAY 15 OF THE THERAPY.
     Route: 065
  13. IFOSFAMIDE [Suspect]
     Active Substance: IFOSFAMIDE
     Indication: Acute lymphocytic leukaemia
     Dosage: UNK
     Route: 065
  14. LEUCOVORIN CALCIUM [Suspect]
     Active Substance: LEUCOVORIN CALCIUM
     Indication: Acute lymphocytic leukaemia
     Dosage: UNK
     Route: 065
  15. METHOTREXATE [Suspect]
     Active Substance: METHOTREXATE
     Indication: Acute lymphocytic leukaemia
     Dosage: 5 G/M2
     Route: 065
  16. MERCAPTOPURINE [Suspect]
     Active Substance: MERCAPTOPURINE
     Indication: Acute lymphocytic leukaemia
     Dosage: UNK
     Route: 065
  17. METHYLPREDNISOLONE [Suspect]
     Active Substance: METHYLPREDNISOLONE
     Indication: Acute lymphocytic leukaemia
     Dosage: UNK
     Route: 065
  18. PREDNISOLONE [Suspect]
     Active Substance: PREDNISOLONE
     Indication: Acute lymphocytic leukaemia
     Dosage: UNK
     Route: 065
  19. PEGASPARGASE [Suspect]
     Active Substance: PEGASPARGASE
     Indication: Acute lymphocytic leukaemia
     Dosage: UNK
     Route: 065
  20. THIOGUANINE ANHYDROUS [Suspect]
     Active Substance: THIOGUANINE ANHYDROUS
     Indication: Acute lymphocytic leukaemia
     Dosage: UNK
     Route: 065
  21. VINCRISTINE SULFATE [Suspect]
     Active Substance: VINCRISTINE SULFATE
     Indication: Acute lymphocytic leukaemia
     Dosage: UNK
     Route: 065
  22. BUDESONIDE [Concomitant]
     Active Substance: BUDESONIDE
     Indication: Respiratory syncytial virus infection
     Dosage: UNK, QD
     Route: 055
     Dates: start: 202112
  23. CLARITHROMYCIN [Concomitant]
     Active Substance: CLARITHROMYCIN
     Indication: Product used for unknown indication
     Dosage: UNK
     Route: 065
  24. MEROPENEM [Concomitant]
     Active Substance: MEROPENEM
     Indication: Product used for unknown indication
     Dosage: UNK
     Route: 065
  25. VANCOMYCIN [Concomitant]
     Active Substance: VANCOMYCIN
     Indication: Product used for unknown indication
     Dosage: UNK
     Route: 065

REACTIONS (14)
  - Circulatory collapse [Fatal]
  - Respiratory syncytial virus infection [Fatal]
  - Hypertriglyceridaemia [Fatal]
  - Gastrointestinal haemorrhage [Fatal]
  - Renal failure [Fatal]
  - Hypoalbuminaemia [Fatal]
  - Pancytopenia [Fatal]
  - Hepatotoxicity [Fatal]
  - Electrolyte imbalance [Fatal]
  - Polyneuropathy [Fatal]
  - Coagulopathy [Fatal]
  - Clostridium difficile infection [Fatal]
  - Product use in unapproved indication [Unknown]
  - Product use issue [Unknown]
